FAERS Safety Report 24699836 (Version 2)
Quarter: 2025Q2

REPORT INFORMATION
  Report Type: Report from Study
  Country: US (occurrence: US)
  Receive Date: 20241205
  Receipt Date: 20250529
  Transmission Date: 20250716
  Serious: Yes (Hospitalization)
  Sender: BOEHRINGER INGELHEIM
  Company Number: US-BoehringerIngelheim-2023-BI-278620

PATIENT
  Age: 56 Year
  Sex: Male

DRUGS (3)
  1. OFEV [Suspect]
     Active Substance: NINTEDANIB
     Indication: Idiopathic pulmonary fibrosis
     Dates: start: 2019
  2. DUPIXENT [Concomitant]
     Active Substance: DUPILUMAB
     Indication: Pruritus
     Dates: start: 202503
  3. INFLUENZA VIRUS VACCINE [Concomitant]
     Active Substance: INFLUENZA VIRUS VACCINE
     Indication: Product used for unknown indication

REACTIONS (11)
  - Decreased appetite [Unknown]
  - Post vaccination syndrome [Unknown]
  - Balance disorder [Unknown]
  - Cyst [Unknown]
  - Fall [Unknown]
  - Cardiac failure congestive [Unknown]
  - Malaise [Unknown]
  - Post procedural complication [Unknown]
  - Nasopharyngitis [Not Recovered/Not Resolved]
  - Pulmonary mass [Unknown]
  - Terminal insomnia [Unknown]

NARRATIVE: CASE EVENT DATE: 20220101
